FAERS Safety Report 7494458-1 (Version None)
Quarter: 2011Q2

REPORT INFORMATION
  Report Type: 
  Country: None (occurrence: None)
  Receive Date: 20110520
  Receipt Date: 20110418
  Transmission Date: 20111010
  Serious: Yes (Other)
  Sender: FDA-Public Use
  Company Number: US-BAYER-201020251NA

PATIENT
  Age: 51 Year
  Sex: Female
  Weight: 83 kg

DRUGS (13)
  1. YASMIN [Concomitant]
     Indication: MENOPAUSE
  2. PROMETHAZINE W/ CODEINE [Concomitant]
     Indication: BRONCHITIS
     Dosage: 10/6.25MG/5ML EVERY 4 HOURS PRN
     Route: 048
     Dates: start: 20080327
  3. ZITHROMAX [Concomitant]
     Indication: BRONCHITIS
     Dosage: 250 MG, UNK
     Dates: start: 20080327, end: 20080401
  4. TRAZODONE HCL [Concomitant]
  5. YAZ [Suspect]
     Indication: CONTRACEPTION
     Dosage: UNK UNK, UNK
     Route: 048
     Dates: start: 20070401, end: 20080901
  6. YAZ [Suspect]
     Indication: MENOPAUSE
  7. YASMIN [Concomitant]
     Indication: CONTRACEPTION
     Dosage: UNK
     Dates: start: 20031201, end: 20070401
  8. SYNTHROID [Concomitant]
  9. XANAX [Concomitant]
  10. PROZAC [Concomitant]
  11. CEPHALEXIN [Concomitant]
     Indication: PRODUCT USED FOR UNKNOWN INDICATION
     Dosage: 250-500 MG
     Dates: start: 20080218
  12. ZOLPIDEM [Concomitant]
     Indication: PRODUCT USED FOR UNKNOWN INDICATION
     Dosage: 10 MG, HS
     Route: 048
     Dates: start: 20080327
  13. ESTRATEST [Concomitant]

REACTIONS (7)
  - DEEP VEIN THROMBOSIS [None]
  - PAIN IN EXTREMITY [None]
  - THROMBOPHLEBITIS SUPERFICIAL [None]
  - SKIN WARM [None]
  - CONTUSION [None]
  - OEDEMA PERIPHERAL [None]
  - ERYTHEMA [None]
